FAERS Safety Report 6333387-3 (Version None)
Quarter: 2009Q3

REPORT INFORMATION
  Report Type: 
  Country: None (occurrence: None)
  Receive Date: 20090828
  Receipt Date: 20090817
  Transmission Date: 20100115
  Serious: No
  Sender: FDA-Public Use
  Company Number: CZ-ELI_LILLY_AND_COMPANY-CZ200908004063

PATIENT
  Sex: Male

DRUGS (2)
  1. STRATTERA [Suspect]
     Indication: ATTENTION DEFICIT/HYPERACTIVITY DISORDER
     Dosage: 10 MG, DAILY (1/D)
     Route: 048
     Dates: start: 20081016, end: 20090602
  2. RISPERDAL [Concomitant]
     Dosage: UNK, UNKNOWN
     Route: 048
     Dates: start: 20081016

REACTIONS (1)
  - ELECTROCARDIOGRAM QT PROLONGED [None]
